FAERS Safety Report 5556291-7 (Version None)
Quarter: 2007Q4

REPORT INFORMATION
  Report Type: 
  Country: None (occurrence: None)
  Receive Date: 20071213
  Receipt Date: 20070914
  Transmission Date: 20080405
  Serious: No
  Sender: FDA-Public Use
  Company Number: US-AMGEN-KDL231905

PATIENT
  Sex: Female
  Weight: 64.5 kg

DRUGS (2)
  1. ENBREL [Suspect]
     Indication: RHEUMATOID ARTHRITIS
     Route: 058
     Dates: start: 20001115, end: 20070301
  2. METHOTREXATE [Concomitant]
     Dates: start: 19840101

REACTIONS (16)
  - ASTHENIA [None]
  - BACK PAIN [None]
  - CARPAL TUNNEL SYNDROME [None]
  - CHEST PAIN [None]
  - DIZZINESS [None]
  - DYSPNOEA [None]
  - EMPHYSEMA [None]
  - FATIGUE [None]
  - HYPOAESTHESIA [None]
  - INTERVERTEBRAL DISC DEGENERATION [None]
  - MUSCULAR WEAKNESS [None]
  - PARAESTHESIA [None]
  - RADICULOPATHY [None]
  - SYRINGOMYELIA [None]
  - VISUAL DISTURBANCE [None]
  - VISUAL FIELD DEFECT [None]
